FAERS Safety Report 4604294-9 (Version None)
Quarter: 2005Q1

REPORT INFORMATION
  Report Type: 
  Country: None (occurrence: None)
  Receive Date: 20050215
  Receipt Date: 20041201
  Transmission Date: 20050727
  Serious: Yes (Death)
  Sender: FDA-Public Use
  Company Number: 21-732-2004-M0002

PATIENT
  Age: 85 Year
  Sex: Male
  Weight: 65.7716 kg

DRUGS (9)
  1. VANTAS [Suspect]
     Indication: PROSTATE CANCER
     Dosage: 50 MG, ONCE PER YEAR, IMPLANT 057
     Dates: start: 20041118, end: 20041129
  2. NORVASC 5 MG BID [Concomitant]
  3. TOPROL 25 MG BID [Concomitant]
  4. GLYBURIDE 5 MG BID [Concomitant]
  5. ENALAPRIL 5 MG [Concomitant]
  6. FUROSEMIDE 80 MG ONCE PER DAY [Concomitant]
  7. ISOSORBIDE ONCE PER DAY [Concomitant]
  8. NITRO PATCH ONCE PER DAY [Concomitant]
  9. ASPIRIN 81 MG ONCE PER DAY [Concomitant]

REACTIONS (1)
  - DEATH [None]
